FAERS Safety Report 16930456 (Version 1)
Quarter: 2019Q4

REPORT INFORMATION
  Report Type: Spontaneous
  Country: US (occurrence: US)
  Receive Date: 20191017
  Receipt Date: 20191017
  Transmission Date: 20200122
  Serious: No
  Sender: FDA-Public Use
  Company Number: US-PFIZER INC-2019445680

PATIENT
  Age: 82 Year
  Sex: Female

DRUGS (2)
  1. ADVIL LIQUI-GELS [Suspect]
     Active Substance: IBUPROFEN
     Indication: PARAESTHESIA
     Dosage: UNK (TWO IN THE MORNING AND I TOOK ONE THIS MORNING AT 6:30 AND TWO AT NIGHT)
  2. ADVIL LIQUI-GELS [Suspect]
     Active Substance: IBUPROFEN
     Indication: BURNING SENSATION

REACTIONS (1)
  - Nerve compression [Unknown]
